FAERS Safety Report 24871887 (Version 1)
Quarter: 2025Q1

REPORT INFORMATION
  Report Type: Spontaneous
  Country: US (occurrence: US)
  Receive Date: 20250122
  Receipt Date: 20250122
  Transmission Date: 20250408
  Serious: Yes (Other)
  Sender: AUROBINDO
  Company Number: US-AUROBINDO-AUR-APL-2025-002472

PATIENT
  Age: 74 Year
  Sex: Female

DRUGS (3)
  1. THIAMINE [Suspect]
     Active Substance: THIAMINE
     Indication: Wernicke^s encephalopathy
     Route: 042
  2. SEMAGLUTIDE [Concomitant]
     Active Substance: SEMAGLUTIDE
     Indication: Product used for unknown indication
     Route: 065
  3. Immunoglobulin [Concomitant]
     Indication: COVID-19
     Route: 042

REACTIONS (1)
  - Drug ineffective [Unknown]
